FAERS Safety Report 4285475-3 (Version None)
Quarter: 2004Q1

REPORT INFORMATION
  Report Type: 
  Country: None (occurrence: None)
  Receive Date: 20040202
  Receipt Date: 20040121
  Transmission Date: 20041129
  Serious: Yes (Life-Threatening, Hospitalization)
  Sender: FDA-Public Use
  Company Number: DE-JNJFOC-20040104316

PATIENT
  Age: 21 Year
  Sex: Female
  Weight: 100 kg

DRUGS (1)
  1. REMICADE [Suspect]
     Indication: JUVENILE ARTHRITIS
     Dosage: 100 MG, INTRAVENOUS
     Route: 042
     Dates: start: 20030601, end: 20031001

REACTIONS (5)
  - CHILLS [None]
  - COUGH [None]
  - DYSPNOEA [None]
  - SENSATION OF PRESSURE [None]
  - SHOCK [None]
